FAERS Safety Report 12305775 (Version 1)
Quarter: 2016Q2

REPORT INFORMATION
  Report Type: Report from Study
  Country: US (occurrence: US)
  Receive Date: 20160426
  Receipt Date: 20160426
  Transmission Date: 20160815
  Serious: Yes (Other)
  Sender: FDA-Public Use
  Company Number: US-MYLANLABS-2016M1017015

PATIENT

DRUGS (3)
  1. PROBENECID. [Concomitant]
     Active Substance: PROBENECID
     Dosage: 2 G; 3H BEFORE THE BLADDER INSTILLATION
     Route: 048
  2. SODIUM CHLORIDE. [Concomitant]
     Active Substance: SODIUM CHLORIDE
     Dosage: 50 ML SALINE
     Route: 043
  3. CIDOFOVIR. [Suspect]
     Active Substance: CIDOFOVIR
     Indication: BK VIRUS INFECTION
     Dosage: 2.5 MG/KG, IN 50 ML SALINE
     Route: 043

REACTIONS (2)
  - Confusional state [Unknown]
  - Pelvic pain [Unknown]
